FAERS Safety Report 19040721 (Version 1)
Quarter: 2021Q1

REPORT INFORMATION
  Report Type: Report from Study
  Country: None (occurrence: IL)
  Receive Date: 20210323
  Receipt Date: 20210323
  Transmission Date: 20210420
  Serious: Yes (Hospitalization)
  Sender: FDA-Public Use
  Company Number: IL-ABBVIE-21K-082-3823047-00

PATIENT
  Age: 27 Year
  Sex: Female

DRUGS (1)
  1. HUMIRA [Suspect]
     Active Substance: ADALIMUMAB
     Indication: CROHN^S DISEASE
     Route: 058
     Dates: start: 20191224

REACTIONS (14)
  - Head injury [Not Recovered/Not Resolved]
  - Dislocation of vertebra [Unknown]
  - Dizziness [Unknown]
  - Jaw disorder [Not Recovered/Not Resolved]
  - Device use issue [Unknown]
  - Road traffic accident [Unknown]
  - Arthralgia [Unknown]
  - Headache [Unknown]
  - Oral disorder [Not Recovered/Not Resolved]
  - Hypoacusis [Unknown]
  - Localised oedema [Unknown]
  - Feeding disorder [Not Recovered/Not Resolved]
  - Grip strength decreased [Unknown]
  - Back pain [Unknown]

NARRATIVE: CASE EVENT DATE: 202103
